FAERS Safety Report 24164778 (Version 4)
Quarter: 2024Q4

REPORT INFORMATION
  Report Type: Spontaneous
  Country: US (occurrence: US)
  Receive Date: 20240801
  Receipt Date: 20241030
  Transmission Date: 20250114
  Serious: Yes (Life-Threatening, Hospitalization, Other)
  Sender: BRISTOL-MYERS SQUIBB COMPANY
  Company Number: US-EXELIXIS-CABO-24079251

PATIENT
  Age: 73 Year
  Sex: Female

DRUGS (2)
  1. OPDIVO [Suspect]
     Active Substance: NIVOLUMAB
     Indication: Clear cell renal cell carcinoma
     Dosage: 480 MG, Q4WEEKS
     Dates: start: 20240226, end: 20240716
  2. CABOMETYX [Suspect]
     Active Substance: CABOZANTINIB S-MALATE
     Indication: Clear cell renal cell carcinoma
     Dosage: 40 MG, QD
     Route: 048
     Dates: start: 20240226, end: 202407

REACTIONS (3)
  - Pulmonary embolism [Not Recovered/Not Resolved]
  - Atrial fibrillation [Not Recovered/Not Resolved]
  - Focal dyscognitive seizures [Recovering/Resolving]

NARRATIVE: CASE EVENT DATE: 20240701
